FAERS Safety Report 14554656 (Version 1)
Quarter: 2018Q1

REPORT INFORMATION
  Report Type: Spontaneous
  Country: US (occurrence: US)
  Receive Date: 20180217
  Receipt Date: 20180217
  Transmission Date: 20180509
  Serious: No
  Sender: FDA-Public Use
  Company Number: None

PATIENT
  Age: 58 Year
  Sex: Male
  Weight: 88.91 kg

DRUGS (1)
  1. GAMUNEX-C [Suspect]
     Active Substance: HUMAN IMMUNOGLOBULIN G
     Indication: CHRONIC INFLAMMATORY DEMYELINATING POLYRADICULONEUROPATHY
     Dosage: 40 GRAMS EVERY 4 WEEKS IV
     Route: 042
     Dates: start: 20171020

REACTIONS (5)
  - Blood pressure decreased [None]
  - Infusion related reaction [None]
  - Feeling cold [None]
  - Cold sweat [None]
  - Hyperhidrosis [None]

NARRATIVE: CASE EVENT DATE: 20171020
